FAERS Safety Report 15632385 (Version 1)
Quarter: 2018Q4

REPORT INFORMATION
  Report Type: Spontaneous
  Country: US (occurrence: US)
  Receive Date: 20181119
  Receipt Date: 20181119
  Transmission Date: 20190205
  Serious: Yes (Other)
  Sender: FDA-Public Use
  Company Number: None

PATIENT
  Age: 69 Year
  Sex: Male
  Weight: 140.85 kg

DRUGS (9)
  1. CLOPIDOGREL [Concomitant]
     Active Substance: CLOPIDOGREL BISULFATE
     Dates: start: 20150101
  2. TAMSULOSIN [Concomitant]
     Active Substance: TAMSULOSIN
     Dates: start: 20170601
  3. NEXIUM [Concomitant]
     Active Substance: ESOMEPRAZOLE MAGNESIUM
     Dates: start: 20140501
  4. SIMVASTATIN. [Concomitant]
     Active Substance: SIMVASTATIN
     Dates: start: 20080201
  5. AMLOPIDINE BESYLATE TABLETS 10 M [Concomitant]
     Active Substance: AMLODIPINE BESYLATE
     Dates: start: 20080201
  6. METFORMIN HCL [Concomitant]
     Active Substance: METFORMIN HYDROCHLORIDE
     Dates: start: 20080201
  7. HYDROCHLOROTHIAZIDE. [Concomitant]
     Active Substance: HYDROCHLOROTHIAZIDE
     Dates: start: 20080201
  8. LINSINOPRIL [Concomitant]
     Active Substance: LISINOPRIL
     Dates: start: 20080212
  9. 18FLUORINE LABELED FLUORODEOXYGLUCOSE (FDG) [Suspect]
     Active Substance: FLUDEOXYGLUCOSE F-18
     Indication: DIAGNOSTIC PROCEDURE
     Dosage: ?          OTHER FREQUENCY:ONCE EVERY 2 YEARS;?
     Route: 040
     Dates: start: 20020430, end: 20161205

REACTIONS (1)
  - Renal oncocytoma [None]

NARRATIVE: CASE EVENT DATE: 20170509
